FAERS Safety Report 7260745-5 (Version None)
Quarter: 2011Q1

REPORT INFORMATION
  Report Type: 
  Country: None (occurrence: None)
  Receive Date: 20110130
  Receipt Date: 20101222
  Transmission Date: 20110831
  Serious: No
  Sender: FDA-Public Use
  Company Number: US-ABBOTT-10P-163-0693487-00

PATIENT
  Age: 25 Year
  Sex: Female

DRUGS (10)
  1. VITAMIN E [Concomitant]
     Indication: PRODUCT USED FOR UNKNOWN INDICATION
  2. IMURAN [Concomitant]
     Indication: COLITIS ULCERATIVE
  3. BUSPIRONE [Concomitant]
     Indication: ANXIETY
  4. VITAMIN D [Concomitant]
     Indication: PRODUCT USED FOR UNKNOWN INDICATION
  5. HUMIRA [Suspect]
     Indication: PRODUCT USED FOR UNKNOWN INDICATION
     Dates: start: 20101123
  6. ABILIFY [Concomitant]
     Indication: MENTAL DISORDER
  7. ASACOL [Concomitant]
     Indication: COLITIS ULCERATIVE
  8. METFORMIN [Concomitant]
     Indication: DIABETES MELLITUS
  9. VITAMIN B-12 [Concomitant]
     Indication: PRODUCT USED FOR UNKNOWN INDICATION
  10. PROZAC [Concomitant]
     Indication: DEPRESSION

REACTIONS (3)
  - INJECTION SITE HAEMORRHAGE [None]
  - INJECTION SITE PAIN [None]
  - INJECTION SITE ERYTHEMA [None]
